FAERS Safety Report 23715996 (Version 1)
Quarter: 2024Q2

REPORT INFORMATION
  Report Type: Spontaneous
  Country: US (occurrence: US)
  Receive Date: 20240408
  Receipt Date: 20240408
  Transmission Date: 20240717
  Serious: Yes (Other)
  Sender: FDA-Public Use
  Company Number: US-AUROBINDO-AUR-APL-2024-015325

PATIENT
  Age: 68 Year
  Sex: Male

DRUGS (8)
  1. LATANOPROST [Suspect]
     Active Substance: LATANOPROST
     Indication: Angle closure glaucoma
     Dosage: UNK
     Route: 065
  2. LATANOPROST [Suspect]
     Active Substance: LATANOPROST
     Dosage: UNK UNK, ONCE A DAY (ONCE PER DAY OU)
     Route: 065
  3. DIAMOX SEQUELS [Suspect]
     Active Substance: ACETAZOLAMIDE
     Indication: Angle closure glaucoma
     Dosage: 500 MILLIGRAM, TWO TIMES A DAY
     Route: 048
  4. ALPHAGAN P [Suspect]
     Active Substance: BRIMONIDINE TARTRATE
     Indication: Angle closure glaucoma
     Dosage: UNK
     Route: 047
  5. DORZOLAMIDE [Suspect]
     Active Substance: DORZOLAMIDE
     Indication: Angle closure glaucoma
     Dosage: UNK
     Route: 047
  6. PILOCARPINE [Suspect]
     Active Substance: PILOCARPINE
     Indication: Angle closure glaucoma
     Dosage: UNK
     Route: 047
  7. COSOPT [Suspect]
     Active Substance: DORZOLAMIDE HYDROCHLORIDE\TIMOLOL MALEATE
     Indication: Angle closure glaucoma
     Dosage: UNK UNK, TWO TIMES A DAY
     Route: 047
  8. BRIMONIDINE [Suspect]
     Active Substance: BRIMONIDINE TARTRATE
     Indication: Angle closure glaucoma
     Dosage: UNK, 3 TIMES A DAY
     Route: 047

REACTIONS (1)
  - Therapy partial responder [Unknown]
